FAERS Safety Report 18514869 (Version 1)
Quarter: 2020Q4

REPORT INFORMATION
  Report Type: Spontaneous
  Country: US (occurrence: US)
  Receive Date: 20201118
  Receipt Date: 20201118
  Transmission Date: 20210114
  Serious: Yes (Other)
  Sender: FDA-Public Use
  Company Number: US-UCBSA-2019039429

PATIENT
  Age: 27 Year

DRUGS (2)
  1. VIMPAT [Suspect]
     Active Substance: LACOSAMIDE
     Indication: OFF LABEL USE
  2. VIMPAT [Suspect]
     Active Substance: LACOSAMIDE
     Indication: PROPHYLAXIS
     Dosage: UNKNOWN DOSE

REACTIONS (2)
  - Drug reaction with eosinophilia and systemic symptoms [Unknown]
  - Off label use [Unknown]
